FAERS Safety Report 7100071-8 (Version None)
Quarter: 2010Q4

REPORT INFORMATION
  Report Type: 
  Country: None (occurrence: None)
  Receive Date: 20101112
  Receipt Date: 20091216
  Transmission Date: 20110411
  Serious: No
  Sender: FDA-Public Use
  Company Number: A0725617A

PATIENT
  Sex: Female

DRUGS (2)
  1. COREG [Suspect]
     Indication: LEFT VENTRICULAR DYSFUNCTION
     Dosage: 3.125MG TWICE PER DAY
     Route: 048
     Dates: start: 20050101
  2. ATIVAN [Concomitant]

REACTIONS (2)
  - CHILLS [None]
  - DRY EYE [None]
